FAERS Safety Report 6877521-5 (Version None)
Quarter: 2010Q3

REPORT INFORMATION
  Report Type: 
  Country: None (occurrence: None)
  Receive Date: 20100727
  Receipt Date: 20100211
  Transmission Date: 20110219
  Serious: No
  Sender: FDA-Public Use
  Company Number: US-ABBOTT-10P-163-0626566-00

PATIENT
  Sex: Female

DRUGS (1)
  1. SYNTHROID [Suspect]
     Indication: HYPOTHYROIDISM
     Dates: start: 19950101, end: 19950101

REACTIONS (5)
  - ADVERSE REACTION [None]
  - BREAST PAIN [None]
  - BREAST SWELLING [None]
  - FEELING ABNORMAL [None]
  - GENERALISED OEDEMA [None]
